FAERS Safety Report 23951196 (Version 2)
Quarter: 2024Q3

REPORT INFORMATION
  Report Type: Spontaneous
  Country: IE (occurrence: IE)
  Receive Date: 20240607
  Receipt Date: 20240726
  Transmission Date: 20241017
  Serious: Yes (Life-Threatening, Other)
  Sender: MYLAN
  Company Number: IE-MYLANLABS-2024M1050499

PATIENT
  Age: 2 Year
  Sex: Male

DRUGS (1)
  1. EPIPEN JR [Suspect]
     Active Substance: EPINEPHRINE
     Indication: Anaphylactic reaction
     Dosage: 150 MICROGRAM
     Route: 065

REACTIONS (3)
  - Device failure [Unknown]
  - Injury associated with device [Unknown]
  - Needle issue [Unknown]
